FAERS Safety Report 19423841 (Version 1)
Quarter: 2021Q2

REPORT INFORMATION
  Report Type: Spontaneous
  Country: US (occurrence: US)
  Receive Date: 20210616
  Receipt Date: 20210616
  Transmission Date: 20210717
  Serious: No
  Sender: FDA-Public Use
  Company Number: US-TEVA-2021-US-1919368

PATIENT
  Sex: Female

DRUGS (15)
  1. COPAXONE [Suspect]
     Active Substance: GLATIRAMER ACETATE
     Indication: MULTIPLE SCLEROSIS
     Route: 065
  2. MELATONIN [Concomitant]
     Active Substance: MELATONIN
  3. XANAX [Concomitant]
     Active Substance: ALPRAZOLAM
  4. CIPRO [Concomitant]
     Active Substance: CIPROFLOXACIN HYDROCHLORIDE
  5. TURMERIC [Concomitant]
     Active Substance: HERBALS\TURMERIC
  6. VITAMIN B12 [Concomitant]
     Active Substance: CYANOCOBALAMIN
  7. BIOTIN [Concomitant]
     Active Substance: BIOTIN
  8. WELLBUTRIN [Concomitant]
     Active Substance: BUPROPION HYDROCHLORIDE
  9. MODAFINIL. [Concomitant]
     Active Substance: MODAFINIL
  10. OCREVUS [Concomitant]
     Active Substance: OCRELIZUMAB
  11. AMPYRA [Concomitant]
     Active Substance: DALFAMPRIDINE
  12. LOSARTAN. [Concomitant]
     Active Substance: LOSARTAN
  13. SIMVASTATIN. [Concomitant]
     Active Substance: SIMVASTATIN
  14. MOTRIN [Concomitant]
     Active Substance: IBUPROFEN
  15. VITAMIN D3 [Concomitant]
     Active Substance: CHOLECALCIFEROL

REACTIONS (1)
  - Injection site reaction [Unknown]
